FAERS Safety Report 10445933 (Version 2)
Quarter: 2014Q4

REPORT INFORMATION
  Report Type: Report from Study
  Country: US (occurrence: US)
  Receive Date: 20140910
  Receipt Date: 20141230
  Transmission Date: 20150528
  Serious: Yes (Other)
  Sender: FDA-Public Use
  Company Number: US-SA-2014SA121374

PATIENT
  Age: 68 Year
  Sex: Male
  Weight: 103.46 kg

DRUGS (8)
  1. CAMPATH [Suspect]
     Active Substance: ALEMTUZUMAB
     Indication: PLASMA CELL MYELOMA
     Dosage: 2 HOURS
     Route: 042
     Dates: start: 20130221, end: 20130303
  2. TRAMADOL HYDROCHLORIDE. [Concomitant]
     Active Substance: TRAMADOL HYDROCHLORIDE
     Indication: PAIN
     Route: 048
  3. DEFERASIROX [Concomitant]
     Active Substance: DEFERASIROX
     Indication: IRON OVERLOAD
     Route: 048
  4. FLUCONAZOLE. [Concomitant]
     Active Substance: FLUCONAZOLE
     Route: 048
  5. CEFPODOXIME PROXETIL. [Concomitant]
     Active Substance: CEFPODOXIME PROXETIL
     Indication: PYREXIA
     Route: 048
     Dates: end: 20140605
  6. ONDANSETRON [Concomitant]
     Active Substance: ONDANSETRON
     Route: 048
  7. VALACICLOVIR [Concomitant]
     Active Substance: VALACYCLOVIR HYDROCHLORIDE
     Indication: ANTIVIRAL TREATMENT
     Route: 048
  8. CAMPATH [Suspect]
     Active Substance: ALEMTUZUMAB
     Indication: MYELODYSPLASTIC SYNDROME
     Dosage: 2 HOURS
     Route: 042
     Dates: start: 20130221, end: 20130303

REACTIONS (5)
  - Febrile neutropenia [Unknown]
  - Pneumonia [Unknown]
  - Epididymitis [Unknown]
  - Cholelithiasis [Unknown]
  - Pancytopenia [Unknown]

NARRATIVE: CASE EVENT DATE: 20130829
